FAERS Safety Report 9507707 (Version 2)
Quarter: 2013Q3

REPORT INFORMATION
  Report Type: Spontaneous
  Country: JP (occurrence: JP)
  Receive Date: 20130909
  Receipt Date: 20130916
  Transmission Date: 20140515
  Serious: Yes (Other)
  Sender: FDA-Public Use
  Company Number: JP-ASTRAZENECA-2013SE67860

PATIENT
  Age: 83 Year
  Sex: Female

DRUGS (3)
  1. MEROPEN [Suspect]
     Indication: INFECTION
     Route: 042
  2. AMIKACIN SULFATE [Suspect]
     Route: 065
  3. FUNGUARD [Suspect]
     Route: 065

REACTIONS (1)
  - Hepatic function abnormal [Recovered/Resolved]
